FAERS Safety Report 10970708 (Version 2)
Quarter: 2015Q2

REPORT INFORMATION
  Report Type: Spontaneous
  Country: IT (occurrence: IT)
  Receive Date: 20150331
  Receipt Date: 20150415
  Transmission Date: 20150821
  Serious: Yes (Other)
  Sender: FDA-Public Use
  Company Number: IT-PFIZER INC-2015105918

PATIENT
  Age: 28 Year
  Sex: Female

DRUGS (3)
  1. SUNITINIB MALATE [Suspect]
     Active Substance: SUNITINIB MALATE
     Dosage: 37.5 MG, DAILY
     Dates: start: 201205, end: 201301
  2. SUNITINIB MALATE [Suspect]
     Active Substance: SUNITINIB MALATE
     Indication: CLEAR CELL SARCOMA OF SOFT TISSUE
     Dosage: 37.5 MG, DAILY
     Dates: start: 201201
  3. SUNITINIB MALATE [Suspect]
     Active Substance: SUNITINIB MALATE
     Dosage: 12.5 MG, DAILY
     Dates: start: 201301

REACTIONS (3)
  - Leukopenia [Unknown]
  - Cardiac failure [Unknown]
  - Neutropenia [Unknown]

NARRATIVE: CASE EVENT DATE: 201301
